FAERS Safety Report 6697521-8 (Version None)
Quarter: 2010Q2

REPORT INFORMATION
  Report Type: 
  Country: None (occurrence: None)
  Receive Date: 20100420
  Receipt Date: 20091125
  Transmission Date: 20101027
  Serious: Yes (Other)
  Sender: FDA-Public Use
  Company Number: ALL1-2009-03850

PATIENT
  Age: 56 Year
  Sex: Female
  Weight: 56.7 kg

DRUGS (3)
  1. LIALDA [Suspect]
     Indication: DIARRHOEA
     Dosage: 1.2 G, 4X/DAY:QID, ORAL,  1.2 G, 3X/DAY:TID, ORAL
     Route: 048
     Dates: start: 20090101, end: 20091101
  2. LIALDA [Suspect]
     Indication: DIARRHOEA
     Dosage: 1.2 G, 4X/DAY:QID, ORAL,  1.2 G, 3X/DAY:TID, ORAL
     Route: 048
     Dates: start: 20091101
  3. COUMADIN [Concomitant]

REACTIONS (3)
  - ALANINE AMINOTRANSFERASE INCREASED [None]
  - ASPARTATE AMINOTRANSFERASE INCREASED [None]
  - OFF LABEL USE [None]
